FAERS Safety Report 16945764 (Version 6)
Quarter: 2020Q4

REPORT INFORMATION
  Report Type: Report from Study
  Country: US (occurrence: US)
  Receive Date: 20191022
  Receipt Date: 20201117
  Transmission Date: 20210113
  Serious: Yes (Life-Threatening, Hospitalization, Other)
  Sender: FDA-Public Use
  Company Number: NVSC2019US011945

PATIENT
  Age: 41 Year
  Sex: Female
  Weight: 57 kg

DRUGS (2)
  1. ILARIS [Suspect]
     Active Substance: CANAKINUMAB
     Indication: JUVENILE IDIOPATHIC ARTHRITIS
     Dosage: 230 MG, QMO
     Route: 058
  2. ILARIS [Suspect]
     Active Substance: CANAKINUMAB
     Indication: STILL^S DISEASE
     Dosage: 240 MG, QMO (DOSE INCREASED TO 260)
     Route: 058
     Dates: start: 201903

REACTIONS (18)
  - Nephrolithiasis [Not Recovered/Not Resolved]
  - Thyroid disorder [Unknown]
  - Obesity [Unknown]
  - Off label use [Recovered/Resolved]
  - Thrombosis [Recovering/Resolving]
  - Ear infection [Not Recovered/Not Resolved]
  - Rash [Unknown]
  - White blood cell count decreased [Recovering/Resolving]
  - H1N1 influenza [Recovered/Resolved]
  - Inflammation [Unknown]
  - Kidney infection [Not Recovered/Not Resolved]
  - Weight increased [Unknown]
  - Weight decreased [Recovering/Resolving]
  - Drug ineffective [Unknown]
  - Illness [Unknown]
  - Wrong technique in product usage process [Unknown]
  - Pyrexia [Unknown]
  - Sepsis [Not Recovered/Not Resolved]

NARRATIVE: CASE EVENT DATE: 201903
